FAERS Safety Report 6240442-5 (Version None)
Quarter: 2009Q2

REPORT INFORMATION
  Report Type: 
  Country: None (occurrence: None)
  Receive Date: 20090623
  Receipt Date: 20090612
  Transmission Date: 20091009
  Serious: Yes (Hospitalization)
  Sender: FDA-Public Use
  Company Number: US-NOVOPROD-286403

PATIENT
  Sex: Female
  Weight: 8.753 kg

DRUGS (2)
  1. NORDITROPIN NORDIFLEX [Suspect]
     Indication: GROWTH HORMONE DEFICIENCY
     Dosage: .35 MG, QD
     Route: 058
     Dates: start: 20090320, end: 20090326
  2. NORDITROPIN NORDIFLEX [Suspect]
     Dosage: .2 MG, QD
     Route: 058
     Dates: start: 20090507

REACTIONS (3)
  - ERYTHEMA MULTIFORME [None]
  - LIP SWELLING [None]
  - PYREXIA [None]
